FAERS Safety Report 8306461-X (Version None)
Quarter: 2012Q2

REPORT INFORMATION
  Report Type: 
  Country: None (occurrence: None)
  Receive Date: 20120424
  Receipt Date: 20120419
  Transmission Date: 20120825
  Serious: Yes (Other)
  Sender: FDA-Public Use
  Company Number: GB-BRISTOL-MYERS SQUIBB COMPANY-16355000

PATIENT
  Age: 43 Year
  Sex: Female

DRUGS (2)
  1. KENALOG [Suspect]
     Indication: BACK PAIN
     Dosage: BILATERAL FACET JOINT INJECTION
     Dates: start: 20120105
  2. LEVOBUPIVACAINE [Suspect]
     Indication: ANAESTHESIA

REACTIONS (12)
  - DIZZINESS [None]
  - HAEMOPTYSIS [None]
  - SPEECH DISORDER [None]
  - HYPOAESTHESIA [None]
  - HAEMATEMESIS [None]
  - DYSGEUSIA [None]
  - VOMITING [None]
  - URINARY TRACT INFECTION [None]
  - DECREASED APPETITE [None]
  - JOINT RANGE OF MOTION DECREASED [None]
  - LOSS OF CONSCIOUSNESS [None]
  - NAUSEA [None]
